FAERS Safety Report 9729550 (Version 5)
Quarter: 2014Q1

REPORT INFORMATION
  Report Type: Spontaneous
  Country: JP (occurrence: JP)
  Receive Date: 20131204
  Receipt Date: 20140225
  Transmission Date: 20141002
  Serious: Yes (Disabling)
  Sender: FDA-Public Use
  Company Number: JP-OTSUKA-JP-2013-15577

PATIENT
  Age: 3 Year
  Sex: Female

DRUGS (10)
  1. BUSULFEX [Suspect]
     Indication: CHEMOTHERAPY
     Dosage: 18 MG MILLIGRAM(S), QID
     Route: 041
     Dates: start: 20120218, end: 20120219
  2. ALKERAN [Suspect]
     Indication: CHEMOTHERAPY
     Dosage: 40 MG MILLIGRAM(S), DAILY DOSE
     Route: 041
     Dates: start: 20120220, end: 20120221
  3. ALKERAN [Suspect]
     Dosage: 30 MG MILLIGRAM(S), DAILY DOSE
     Route: 041
     Dates: start: 20120222, end: 20120222
  4. PHENOBAL [Concomitant]
     Dosage: 50 MG MILLIGRAM(S), DAILY DOSE
     Route: 048
     Dates: start: 20111112, end: 20120215
  5. PHENOBAL [Concomitant]
     Dosage: 60 MG MILLIGRAM(S), DAILY DOSE
     Route: 048
     Dates: start: 20120216, end: 20120222
  6. PHENOBAL [Concomitant]
     Dosage: 50 MG MILLIGRAM(S), DAILY DOSE
     Route: 048
     Dates: start: 20120223
  7. BAKTAR [Concomitant]
     Dosage: 0.9 G GRAM(S), DAILY DOSE
     Route: 048
     Dates: start: 20111125
  8. HALIZON [Concomitant]
     Dosage: 40 MG MILLIGRAM(S), DAILY DOSE
     Route: 048
     Dates: start: 20120125, end: 20120403
  9. BIOFERMIN [Concomitant]
     Dosage: 1.5 G GRAM(S), DAILY DOSE
     Route: 048
     Dates: start: 20120228
  10. LEVOTHYROXINE SODIUM [Concomitant]
     Dosage: 30 MG MILLIGRAM(S), DAILY DOSE
     Route: 048
     Dates: start: 20120308

REACTIONS (1)
  - Pulmonary veno-occlusive disease [Recovered/Resolved]
